FAERS Safety Report 5518131-1 (Version None)
Quarter: 2007Q4

REPORT INFORMATION
  Report Type: 
  Country: None (occurrence: None)
  Receive Date: 20071115
  Receipt Date: 20071112
  Transmission Date: 20080405
  Serious: Yes (Death)
  Sender: FDA-Public Use
  Company Number: JP-AVENTIS-200710626JP

PATIENT
  Sex: Male

DRUGS (2)
  1. AMARYL [Suspect]
     Route: 048
  2. AMARYL [Suspect]
     Route: 048

REACTIONS (1)
  - HYPOGLYCAEMIA [None]
